FAERS Safety Report 11634314 (Version 1)
Quarter: 2015Q4

REPORT INFORMATION
  Report Type: Spontaneous
  Country: CH (occurrence: FR)
  Receive Date: 20151015
  Receipt Date: 20151015
  Transmission Date: 20160304
  Serious: Yes (Other)
  Sender: FDA-Public Use
  Company Number: CH-LPDUSPRD-20150793

PATIENT
  Age: 45 Year
  Sex: Male

DRUGS (10)
  1. ZINNAT [Suspect]
     Active Substance: CEFUROXIME AXETIL
     Dosage: 1.5 GM, ONE DOSE
     Route: 042
     Dates: start: 20150914, end: 20150914
  2. PARACETAMOL [Concomitant]
     Active Substance: ACETAMINOPHEN
     Dosage: 1 GM TIMES 1 DOSE
     Route: 065
     Dates: start: 20150914, end: 20150914
  3. METHYLPREDNISOLONE. [Suspect]
     Active Substance: METHYLPREDNISOLONE
     Dosage: 50 MG TWICE A DAY
     Route: 042
     Dates: start: 20150910, end: 20150914
  4. FERINJECT [Suspect]
     Active Substance: FERRIC CARBOXYMALTOSE
     Dosage: 2 DOSAGE FORMS, 1 IN 1 TOTAL
     Route: 042
     Dates: start: 20150914, end: 20150914
  5. HEPARIN SODIUM. [Concomitant]
     Active Substance: HEPARIN SODIUM
     Dosage: DOSE NOT PROVIDED
     Route: 042
     Dates: start: 201508
  6. OXYCONTIN [Suspect]
     Active Substance: OXYCODONE HYDROCHLORIDE
     Dosage: 10 MG TWICE/DAY
     Route: 048
     Dates: start: 201508, end: 20150914
  7. SUFENTANIL (MERCK) [Suspect]
     Active Substance: SUFENTANIL CITRATE
     Dosage: 25 MCG, ONE DOSE
     Route: 042
     Dates: start: 20150914, end: 20150914
  8. ATRACURIUM (HOSPIRA) [Suspect]
     Active Substance: ATRACURIUM BESYLATE
     Dosage: 30 MG ONE DOSE
     Route: 042
     Dates: start: 20150914, end: 20150914
  9. PROPOFOL (FRESENIUS) [Suspect]
     Active Substance: PROPOFOL
     Dosage: 200 MG ONE DOSE
     Route: 042
     Dates: start: 20150914, end: 20150914
  10. FASTURTEC [Concomitant]
     Active Substance: RASBURICASE
     Dosage: 12 MG, ONE TIME DOSE
     Route: 042
     Dates: start: 20150910, end: 20150910

REACTIONS (2)
  - Mixed liver injury [Unknown]
  - Acute respiratory distress syndrome [Unknown]

NARRATIVE: CASE EVENT DATE: 20150914
